FAERS Safety Report 19895673 (Version 2)
Quarter: 2021Q4

REPORT INFORMATION
  Report Type: Other
  Country: AU (occurrence: AU)
  Receive Date: 20210929
  Receipt Date: 20211223
  Transmission Date: 20220303
  Serious: No
  Sender: FDA-Public Use
  Company Number: AU-TOLMAR, INC.-20AU023335

PATIENT
  Sex: Male

DRUGS (2)
  1. ELIGARD [Suspect]
     Active Substance: LEUPROLIDE ACETATE
     Indication: Prostate cancer
     Dosage: 45 MG, Q 6 MONTH
     Dates: start: 20200410
  2. ELIGARD [Suspect]
     Active Substance: LEUPROLIDE ACETATE
     Dosage: 45 MG, Q 6 MONTH

REACTIONS (7)
  - Disturbance in attention [Unknown]
  - Muscular weakness [Unknown]
  - Mood swings [Unknown]
  - Discomfort [Unknown]
  - Sacral pain [Unknown]
  - Muscle spasms [Unknown]
  - Hot flush [Not Recovered/Not Resolved]
